FAERS Safety Report 4706039-0 (Version None)
Quarter: 2005Q2

REPORT INFORMATION
  Report Type: 
  Country: None (occurrence: None)
  Receive Date: 20050627
  Receipt Date: 20041014
  Transmission Date: 20051028
  Serious: Yes (Hospitalization, Other)
  Sender: FDA-Public Use
  Company Number: US-JNJFOC-20040306271

PATIENT
  Age: 52 Year
  Sex: Male
  Weight: 68.0396 kg

DRUGS (1)
  1. FENTANYL [Suspect]
     Indication: PAIN
     Dosage: 75 UG/HR, 1 IN 72 HOUR, TRANSDERMAL
     Route: 062

REACTIONS (7)
  - DEREALISATION [None]
  - DYSPNOEA [None]
  - IRRITABILITY [None]
  - MOOD SWINGS [None]
  - NAUSEA [None]
  - THERAPEUTIC RESPONSE DECREASED [None]
  - VOMITING [None]
